FAERS Safety Report 4850845-9 (Version None)
Quarter: 2005Q4

REPORT INFORMATION
  Report Type: 
  Country: None (occurrence: None)
  Receive Date: 20051208
  Receipt Date: 20051128
  Transmission Date: 20060501
  Serious: Yes (Hospitalization, Other)
  Sender: FDA-Public Use
  Company Number: 2005161796

PATIENT
  Sex: Female
  Weight: 104.3273 kg

DRUGS (16)
  1. ZYRTEC [Suspect]
     Indication: FOOD ALLERGY
     Dosage: (10 MG, PRN),
  2. ZYRTEC [Suspect]
     Indication: SEASONAL ALLERGY
     Dosage: (10 MG, PRN),
  3. ZYRTEC [Suspect]
     Indication: URTICARIA
     Dosage: (10 MG, PRN),
  4. ACCUPRIL [Suspect]
     Indication: ILL-DEFINED DISORDER
  5. LYRICA [Suspect]
     Indication: FIBROMYALGIA
     Dosage: 50 MG (50 MG, 1 IN 1 D), ORAL
     Route: 048
     Dates: start: 20051101
  6. LYRICA [Suspect]
     Indication: INTERVERTEBRAL DISC PROTRUSION
     Dosage: 50 MG (50 MG, 1 IN 1 D), ORAL
     Route: 048
     Dates: start: 20051101
  7. LYRICA [Suspect]
     Indication: NEURALGIA
     Dosage: 50 MG (50 MG, 1 IN 1 D), ORAL
     Route: 048
     Dates: start: 20051101
  8. NEURONTIN [Suspect]
     Indication: FIBROMYALGIA
     Dosage: (300 MG),
     Dates: end: 20051101
  9. NEURONTIN [Suspect]
     Indication: INTERVERTEBRAL DISC PROTRUSION
     Dosage: (300 MG),
     Dates: end: 20051101
  10. NEURONTIN [Suspect]
     Indication: NEURALGIA
     Dosage: (300 MG),
     Dates: end: 20051101
  11. ZEBETA [Concomitant]
  12. IMDUR [Concomitant]
  13. NORVASC [Concomitant]
  14. LEVOXYL [Concomitant]
  15. PROTONIX [Concomitant]
  16. FLOVENT [Concomitant]

REACTIONS (16)
  - ABDOMINAL DISCOMFORT [None]
  - ANGIONEUROTIC OEDEMA [None]
  - ASTHENIA [None]
  - DIZZINESS [None]
  - DYSPNOEA [None]
  - FALL [None]
  - FIBROMYALGIA [None]
  - INTERVERTEBRAL DISC PROTRUSION [None]
  - MUSCLE SPASMS [None]
  - MUSCLE TWITCHING [None]
  - NERVOUSNESS [None]
  - NEURALGIA [None]
  - OEDEMA PERIPHERAL [None]
  - PALPITATIONS [None]
  - RASH [None]
  - TREMOR [None]
